FAERS Safety Report 9284154 (Version 1)
Quarter: 2013Q2

REPORT INFORMATION
  Report Type: Report from Study
  Country: AR (occurrence: AR)
  Receive Date: 20130510
  Receipt Date: 20130510
  Transmission Date: 20140414
  Serious: Yes (Other)
  Sender: FDA-Public Use
  Company Number: PHHY2013AR046672

PATIENT
  Sex: 0

DRUGS (1)
  1. DIOVAN [Suspect]

REACTIONS (2)
  - Lip and/or oral cavity cancer [Not Recovered/Not Resolved]
  - Pain in extremity [Not Recovered/Not Resolved]
